FAERS Safety Report 6122371-0 (Version None)
Quarter: 2009Q1

REPORT INFORMATION
  Report Type: 
  Country: None (occurrence: None)
  Receive Date: 20090318
  Receipt Date: 20090211
  Transmission Date: 20090719
  Serious: No
  Sender: FDA-Public Use
  Company Number: US-ASTRAZENECA-2009UW04016

PATIENT
  Age: 72 Year
  Sex: Female
  Weight: 86.2 kg

DRUGS (6)
  1. SYMBICORT [Suspect]
     Dosage: 160/4.5 MG, 1 PUFF TWICE DAILY
     Route: 055
     Dates: start: 20090121
  2. GLIPIZIDE [Concomitant]
  3. LEVOXYL [Concomitant]
  4. SINGULAIR [Concomitant]
  5. BENICAR [Concomitant]
  6. CARDIZEM [Concomitant]

REACTIONS (2)
  - BLOOD GLUCOSE INCREASED [None]
  - WEIGHT INCREASED [None]
